FAERS Safety Report 7096742-2 (Version None)
Quarter: 2010Q4

REPORT INFORMATION
  Report Type: 
  Country: None (occurrence: None)
  Receive Date: 20101111
  Receipt Date: 20091116
  Transmission Date: 20110411
  Serious: No
  Sender: FDA-Public Use
  Company Number: US-KINGPHARMUSA00001-K200901458

PATIENT
  Sex: Female
  Weight: 37.188 kg

DRUGS (7)
  1. FLECTOR [Suspect]
     Indication: ARTHRALGIA
     Dosage: 1 PATCH, QD
     Route: 061
     Dates: start: 20090914, end: 20091109
  2. FLECTOR [Suspect]
     Indication: BURSITIS
  3. LISINOPRIL [Concomitant]
     Indication: HYPERTENSION
     Dosage: 5 MG, QD
  4. FOSAMAX [Concomitant]
     Dosage: UNK
  5. ELAVIL [Concomitant]
     Indication: INSOMNIA
     Dosage: UNK
  6. SYNTHROID [Concomitant]
     Indication: HYPOTHYROIDISM
     Dosage: UNK
  7. HORMONES NOS [Concomitant]
     Dosage: UNK

REACTIONS (3)
  - HEPATIC ENZYME INCREASED [None]
  - MUSCULAR WEAKNESS [None]
  - PARAESTHESIA [None]
